FAERS Safety Report 8523333-6 (Version None)
Quarter: 2012Q2

REPORT INFORMATION
  Report Type: 
  Country: None (occurrence: None)
  Receive Date: 20120406
  Receipt Date: 20100303
  Transmission Date: 20120825
  Serious: Yes (Other)
  Sender: FDA-Public Use
  Company Number: PHEH2010US02653

PATIENT
  Sex: Female

DRUGS (6)
  1. PREMARIN [Concomitant]
  2. GLIMEPIRIDE [Concomitant]
  3. PEPCID [Concomitant]
  4. BENADRYL [Concomitant]
  5. GLUCOPHAGE [Concomitant]
  6. TASIGNA [Suspect]
     Indication: CHRONIC MYELOID LEUKAEMIA
     Dosage: 400 MG, BID, ORAL
     Route: 048
     Dates: start: 20091211

REACTIONS (1)
  - DIABETES MELLITUS INADEQUATE CONTROL [None]
